FAERS Safety Report 8091768-4 (Version None)
Quarter: 2012Q1

REPORT INFORMATION
  Report Type: 
  Country: None (occurrence: None)
  Receive Date: 20120129
  Receipt Date: 20111123
  Transmission Date: 20120608
  Serious: No
  Sender: FDA-Public Use
  Company Number: US-ABBOTT-11P-163-0871610-00

PATIENT
  Sex: Male

DRUGS (11)
  1. PANTOPRAZOLE [Concomitant]
     Indication: PRODUCT USED FOR UNKNOWN INDICATION
     Dosage: 40 MG DAILY
  2. IBUPROFEN [Concomitant]
     Indication: PRODUCT USED FOR UNKNOWN INDICATION
  3. CLOBETASOL [Concomitant]
     Indication: PRODUCT USED FOR UNKNOWN INDICATION
  4. HUMIRA [Suspect]
     Indication: PSORIASIS
     Dates: start: 20111024
  5. BICURY [Concomitant]
     Indication: PRODUCT USED FOR UNKNOWN INDICATION
     Dosage: 1000 MG DAILY
  6. FOLIC ACID [Concomitant]
     Indication: PRODUCT USED FOR UNKNOWN INDICATION
     Dosage: 800 MG DAILY
  7. DOVONEX [Concomitant]
     Indication: PRODUCT USED FOR UNKNOWN INDICATION
  8. AMLODIPINE [Concomitant]
     Indication: PRODUCT USED FOR UNKNOWN INDICATION
     Dosage: 10 MG DAILY
  9. ULORIC [Concomitant]
     Indication: GOUT
     Dosage: 40 MG DAILY
  10. SYMBICORT [Concomitant]
     Indication: DYSPNOEA
     Dosage: 160/4.5 AS NEEDED
  11. VICODIN [Concomitant]
     Indication: PAIN
     Dosage: 5/500MG PRN

REACTIONS (5)
  - RESPIRATORY TRACT CONGESTION [None]
  - OROPHARYNGEAL PAIN [None]
  - INCREASED UPPER AIRWAY SECRETION [None]
  - COUGH [None]
  - BRONCHITIS [None]
